FAERS Safety Report 7733332-X (Version None)
Quarter: 2011Q3

REPORT INFORMATION
  Report Type: 
  Country: None (occurrence: None)
  Receive Date: 20110907
  Receipt Date: 20110902
  Transmission Date: 20111222
  Serious: No
  Sender: FDA-Public Use
  Company Number: US-PFIZER INC-2011208082

PATIENT
  Sex: Male

DRUGS (1)
  1. NIFEDIPINE [Suspect]
     Dosage: 30 MG, UNK

REACTIONS (2)
  - DRUG INEFFECTIVE [None]
  - REACTION TO DRUG EXCIPIENTS [None]
